FAERS Safety Report 7503983-6 (Version None)
Quarter: 2011Q2

REPORT INFORMATION
  Report Type: 
  Country: None (occurrence: None)
  Receive Date: 20110525
  Receipt Date: 20110501
  Transmission Date: 20111010
  Serious: Yes (Other)
  Sender: FDA-Public Use
  Company Number: US-JNJCP-30000052730

PATIENT
  Sex: Female

DRUGS (1)
  1. NTG SUN PROTECTION UNSPECIFIED USA NGSBUNUS [Suspect]
     Route: 061

REACTIONS (1)
  - BASAL CELL CARCINOMA [None]
